FAERS Safety Report 10554597 (Version 3)
Quarter: 2014Q4

REPORT INFORMATION
  Report Type: Report from Study
  Country: US (occurrence: US)
  Receive Date: 20141030
  Receipt Date: 20141104
  Transmission Date: 20150529
  Serious: Yes (Hospitalization)
  Sender: FDA-Public Use
  Company Number: US-009507513-1407USA010373

PATIENT
  Age: 57 Year
  Sex: Male
  Weight: 84.1 kg

DRUGS (11)
  1. CHONDROITIN SULFATE (BOVINE)\GLUCOSAMINE SULFATE [Concomitant]
     Active Substance: CHONDROITIN SULFATE (BOVINE)\GLUCOSAMINE SULFATE
     Indication: ARTHRITIS
  2. DIPHENHYDRAMINE HYDROCHLORIDE. [Concomitant]
     Active Substance: DIPHENHYDRAMINE HYDROCHLORIDE
     Indication: INSOMNIA
     Dosage: TOTAL DAILY DOSE: 25 MG, PRN
     Route: 048
     Dates: start: 20140122
  3. CHONDROITIN SULFATE (BOVINE)\GLUCOSAMINE SULFATE [Concomitant]
     Active Substance: CHONDROITIN SULFATE (BOVINE)\GLUCOSAMINE SULFATE
     Indication: ARTHRALGIA
     Dosage: TOTAL DAILY DOSE: 3 TABLETS, QD
     Route: 048
     Dates: start: 20140404
  4. OXYCODONE [Concomitant]
     Active Substance: OXYCODONE
     Indication: ARTHRALGIA
     Dosage: TOTAL DAILY DOSE: 1 TABLET, PRN
     Route: 048
     Dates: start: 20140610
  5. PEMBROLIZUMAB. [Suspect]
     Active Substance: PEMBROLIZUMAB
     Dosage: 10 MG/KG, QOW
     Route: 042
     Dates: start: 20140711, end: 20140711
  6. OXYCONTIN [Concomitant]
     Active Substance: OXYCODONE HYDROCHLORIDE
     Indication: ARTHRALGIA
     Dosage: 5 MG, BID
     Route: 050
     Dates: start: 20140610
  7. CYANOCOBALAMIN. [Concomitant]
     Active Substance: CYANOCOBALAMIN
     Indication: ROUTINE HEALTH MAINTENANCE
     Dosage: 1 TABLET, QD
     Route: 048
     Dates: start: 20140319
  8. PROCARDIA [Concomitant]
     Active Substance: NIFEDIPINE
     Indication: HYPERTENSION
     Dosage: 30 MG, QD
     Route: 048
     Dates: start: 20120812
  9. PEMBROLIZUMAB. [Suspect]
     Active Substance: PEMBROLIZUMAB
     Indication: NEOPLASM MALIGNANT
     Dosage: 10 MG/KG, QOW
     Route: 042
     Dates: start: 20140630, end: 20140630
  10. CHOLECALCIFEROL [Concomitant]
     Active Substance: CHOLECALCIFEROL
     Indication: ROUTINE HEALTH MAINTENANCE
     Dosage: TOTAL DAILY DOSE: 5000 UNIT, QD
     Route: 048
     Dates: start: 20140319
  11. CENTRUM (MINERALS (UNSPECIFIED) (+) VITAMINS (UNSPECIFIED)) [Concomitant]
     Indication: ROUTINE HEALTH MAINTENANCE
     Dosage: 500 MG, QD
     Route: 048
     Dates: start: 20120427

REACTIONS (1)
  - Renal failure [Not Recovered/Not Resolved]

NARRATIVE: CASE EVENT DATE: 20140716
